FAERS Safety Report 14743142 (Version 1)
Quarter: 2018Q2

REPORT INFORMATION
  Report Type: Spontaneous
  Country: CZ (occurrence: CZ)
  Receive Date: 20180410
  Receipt Date: 20180410
  Transmission Date: 20180711
  Serious: Yes (Other)
  Sender: FDA-Public Use
  Company Number: CZ-B.I. PHARMACEUTICALS,INC./RIDGEFIELD-2018-12-001283

PATIENT
  Age: 73 Year
  Sex: Male

DRUGS (2)
  1. FORMANO [Suspect]
     Active Substance: FORMOTEROL FUMARATE
     Indication: CHRONIC OBSTRUCTIVE PULMONARY DISEASE
     Dosage: DOSAGE: TWO TIMES PER DAY (MORNING AND EVENING)
     Route: 065
     Dates: start: 20180108
  2. SPIOLTO [Suspect]
     Active Substance: OLODATEROL HYDROCHLORIDE\TIOTROPIUM BROMIDE MONOHYDRATE
     Indication: CHRONIC OBSTRUCTIVE PULMONARY DISEASE
     Dosage: DOSAGE: 2 TIMES PER DAY (MORNING AND EVENING)
     Route: 065
     Dates: start: 20171012, end: 20180108

REACTIONS (3)
  - Productive cough [Recovering/Resolving]
  - Dry skin [Unknown]
  - Mucosal dryness [Unknown]
